FAERS Safety Report 25421351 (Version 1)
Quarter: 2025Q2

REPORT INFORMATION
  Report Type: Spontaneous
  Country: GB (occurrence: GB)
  Receive Date: 20250611
  Receipt Date: 20250611
  Transmission Date: 20250716
  Serious: Yes (Life-Threatening)
  Sender: Kenvue
  Company Number: None

PATIENT

DRUGS (7)
  1. ACETAMINOPHEN [Suspect]
     Active Substance: ACETAMINOPHEN
     Indication: Product used for unknown indication
     Dosage: 1 GRAM, FOUR TIME A DAY
     Route: 048
     Dates: start: 20250603, end: 20250603
  2. ACETAMINOPHEN [Concomitant]
     Active Substance: ACETAMINOPHEN
     Indication: Lower respiratory tract infection
     Dosage: 2 DOSAGE FORM, FOUR TIME A DAY
     Route: 048
     Dates: start: 20250512, end: 20250512
  3. ACETAMINOPHEN [Concomitant]
     Active Substance: ACETAMINOPHEN
     Dosage: 2 DOSAGE FORM, FOUR TIME A DAY
     Route: 048
     Dates: start: 20250528, end: 20250528
  4. ACETAMINOPHEN [Concomitant]
     Active Substance: ACETAMINOPHEN
     Dosage: 2 DOSAGE FORM, FOUR TIME A DAY
     Route: 048
     Dates: start: 20250528, end: 20250528
  5. ACETAMINOPHEN [Concomitant]
     Active Substance: ACETAMINOPHEN
     Dosage: 2 DOSAGE FORM, FOUR TIME A DAY
     Route: 048
     Dates: start: 20250528, end: 20250528
  6. ACETAMINOPHEN [Concomitant]
     Active Substance: ACETAMINOPHEN
     Dosage: 2 DOSAGE FORM, FOUR TIME A DAY
     Route: 048
     Dates: start: 20250528, end: 20250528
  7. ACETAMINOPHEN [Concomitant]
     Active Substance: ACETAMINOPHEN
     Dosage: 2 DOSAGE FORM, FOUR TIME A DAY
     Route: 048
     Dates: start: 20250528, end: 20250528

REACTIONS (1)
  - Abdominal pain [Recovered/Resolved]

NARRATIVE: CASE EVENT DATE: 20250603
